FAERS Safety Report 6637815-5 (Version None)
Quarter: 2010Q1

REPORT INFORMATION
  Report Type: 
  Country: None (occurrence: None)
  Receive Date: 20100317
  Receipt Date: 20100303
  Transmission Date: 20100710
  Serious: Yes (Other)
  Sender: FDA-Public Use
  Company Number: PHEH2010US02886

PATIENT
  Sex: Female

DRUGS (1)
  1. AREDIA [Suspect]
     Indication: HYPERGAMMAGLOBULINAEMIA BENIGN MONOCLONAL
     Dosage: 90 MG, QMO
     Route: 042

REACTIONS (1)
  - STRESS FRACTURE [None]
